FAERS Safety Report 11277363 (Version 2)
Quarter: 2015Q3

REPORT INFORMATION
  Report Type: Spontaneous
  Country: FR (occurrence: FR)
  Receive Date: 20150716
  Receipt Date: 20150826
  Transmission Date: 20151125
  Serious: Yes (Death)
  Sender: FDA-Public Use
  Company Number: FR-CTI_01736_2015

PATIENT
  Age: 1 Day

DRUGS (1)
  1. CUROSURF [Suspect]
     Active Substance: PORACTANT ALFA
     Indication: NEONATAL RESPIRATORY DISTRESS SYNDROME
     Dosage: ONCE
     Route: 007
     Dates: start: 20150528, end: 20150528

REACTIONS (2)
  - Drug ineffective [Fatal]
  - Product quality issue [Fatal]

NARRATIVE: CASE EVENT DATE: 20150528
